FAERS Safety Report 21530365 (Version 1)
Quarter: 2022Q4

REPORT INFORMATION
  Report Type: Spontaneous
  Country: US (occurrence: None)
  Receive Date: 20221031
  Receipt Date: 20221031
  Transmission Date: 20230113
  Serious: No
  Sender: FDA-Public Use
  Company Number: US-Eisai Medical Research-EC-2022-125119

PATIENT

DRUGS (3)
  1. ARICEPT [Suspect]
     Active Substance: DONEPEZIL HYDROCHLORIDE
     Indication: Product used for unknown indication
     Dosage: DOSE AND FREQUENCY UNKNOWN
     Route: 048
  2. OFEV [Concomitant]
     Active Substance: NINTEDANIB
  3. TYLENOL [Concomitant]
     Active Substance: ACETAMINOPHEN

REACTIONS (1)
  - Nightmare [Unknown]
